FAERS Safety Report 5841890-5 (Version None)
Quarter: 2008Q3

REPORT INFORMATION
  Report Type: 
  Country: None (occurrence: None)
  Receive Date: 20080812
  Receipt Date: 20080806
  Transmission Date: 20090109
  Serious: Yes (Death, Life-Threatening, Other)
  Sender: FDA-Public Use
  Company Number: PHHO2008US09704

PATIENT
  Sex: Male

DRUGS (2)
  1. CLOZARIL [Suspect]
     Route: 048
  2. CLOZAPINE [Suspect]
     Route: 048

REACTIONS (18)
  - ACUTE PRERENAL FAILURE [None]
  - CARDIAC ARREST [None]
  - CARDIOMYOPATHY [None]
  - DIARRHOEA [None]
  - DILATATION VENTRICULAR [None]
  - ELECTROCARDIOGRAM ABNORMAL [None]
  - ELECTROLYTE IMBALANCE [None]
  - GLOMERULAR FILTRATION RATE DECREASED [None]
  - HEPATOMEGALY [None]
  - HYPOTENSION [None]
  - MYOCARDITIS [None]
  - PULMONARY OEDEMA [None]
  - PYREXIA [None]
  - QRS AXIS ABNORMAL [None]
  - RENAL FAILURE ACUTE [None]
  - SINUS TACHYCARDIA [None]
  - VENTRICULAR HYPERTROPHY [None]
  - WHITE BLOOD CELL DISORDER [None]
